FAERS Safety Report 8507475-7 (Version None)
Quarter: 2012Q3

REPORT INFORMATION
  Report Type: 
  Country: None (occurrence: None)
  Receive Date: 20120712
  Receipt Date: 20100916
  Transmission Date: 20120928
  Serious: Yes (Other)
  Sender: FDA-Public Use
  Company Number: PHHY2009CA36412

PATIENT
  Sex: Female

DRUGS (8)
  1. SANDOSTATIN LAR [Suspect]
     Indication: BRONCHIAL CARCINOMA
     Dosage: UNK UKN, UNK
     Dates: start: 20090212
  2. SANDOSTATIN LAR [Suspect]
     Dosage: 10 MG, EVERY 4 WEEKS
     Route: 030
  3. ALBUTEROL SULATE [Concomitant]
     Dosage: UNK UKN, PRN
  4. SANDOSTATIN LAR [Suspect]
     Dosage: UNK UKN, UNK
     Route: 030
     Dates: start: 20090701
  5. DEMEROP [Concomitant]
  6. SANDOSTATIN LAR [Suspect]
     Dosage: 20 MG, QMO
     Route: 030
  7. SANDOSTATIN [Suspect]
     Indication: CARCINOID TUMOUR
     Dosage: 100 UG, BID
     Route: 058
     Dates: start: 20090716, end: 20090820
  8. SANDOSTATIN LAR [Suspect]
     Dosage: 20 MG, QMO
     Route: 030
     Dates: start: 20090828

REACTIONS (5)
  - DYSPNOEA [None]
  - PULSE PRESSURE DECREASED [None]
  - ABDOMINAL PAIN [None]
  - ASTHMA [None]
  - NAUSEA [None]
